FAERS Safety Report 8301786-6 (Version None)
Quarter: 2012Q2

REPORT INFORMATION
  Report Type: 
  Country: None (occurrence: None)
  Receive Date: 20120420
  Receipt Date: 20120416
  Transmission Date: 20120825
  Serious: Yes (Death)
  Sender: FDA-Public Use
  Company Number: CA-CELGENEUS-028-21880-12041734

PATIENT
  Sex: Female

DRUGS (1)
  1. REVLIMID [Suspect]
     Indication: MYELODYSPLASTIC SYNDROME
     Dosage: 7.5 MILLIGRAM
     Route: 048
     Dates: start: 20081105, end: 20120401

REACTIONS (1)
  - DEATH [None]
